FAERS Safety Report 5333888-0 (Version None)
Quarter: 2007Q2

REPORT INFORMATION
  Report Type: 
  Country: None (occurrence: None)
  Receive Date: 20070306
  Receipt Date: 20060823
  Transmission Date: 20071010
  Serious: Yes (Hospitalization)
  Sender: FDA-Public Use
  Company Number: A03200605314

PATIENT
  Age: 69 Year
  Sex: Male

DRUGS (2)
  1. PLAVIX [Suspect]
     Dosage: ORAL
     Route: 048
  2. TOPROL-XL [Suspect]
     Dosage: 75 MG QD - ORAL
     Route: 048

REACTIONS (2)
  - HAEMORRHAGE [None]
  - VOMITING [None]
